FAERS Safety Report 6181737-3 (Version None)
Quarter: 2009Q2

REPORT INFORMATION
  Report Type: 
  Country: None (occurrence: None)
  Receive Date: 20090506
  Receipt Date: 20090427
  Transmission Date: 20091009
  Serious: Yes (Hospitalization)
  Sender: FDA-Public Use
  Company Number: ES-ABBOTT-09P-144-0570178-00

PATIENT
  Age: 74 Year
  Sex: Male

DRUGS (7)
  1. DEPAKENE [Suspect]
     Indication: ACUTE PSYCHOSIS
     Route: 048
     Dates: end: 20080715
  2. DEPAKENE [Suspect]
     Route: 048
     Dates: start: 20080715
  3. DEPAKENE [Suspect]
     Dates: end: 20080801
  4. SEROQUEL [Suspect]
     Indication: ACUTE PSYCHOSIS
     Route: 048
     Dates: start: 20080801
  5. CLOZAPINE [Suspect]
     Indication: ACUTE PSYCHOSIS
     Dates: start: 20080601, end: 20080818
  6. LORMETAZEPAM [Concomitant]
     Indication: ACUTE PSYCHOSIS
     Route: 048
  7. QUETIAPINE [Concomitant]
     Indication: DRUG USE FOR UNKNOWN INDICATION

REACTIONS (1)
  - FEBRILE NEUTROPENIA [None]
